FAERS Safety Report 14382826 (Version 1)
Quarter: 2018Q1

REPORT INFORMATION
  Report Type: Spontaneous
  Country: US (occurrence: US)
  Receive Date: 20180113
  Receipt Date: 20180113
  Transmission Date: 20180509
  Serious: No
  Sender: FDA-Public Use
  Company Number: US-ASTRAZENECA-2018SE01472

PATIENT
  Age: 58 Year
  Sex: Male

DRUGS (6)
  1. NEXIUM [Suspect]
     Active Substance: ESOMEPRAZOLE MAGNESIUM
     Dosage: 80 MG IN THE MORNING AND 40 MG AT NIGHT
     Route: 048
  2. PRILOSEC OTC [Suspect]
     Active Substance: OMEPRAZOLE MAGNESIUM
     Indication: GASTRINOMA
     Route: 048
  3. ZANTAC [Concomitant]
     Active Substance: RANITIDINE HYDROCHLORIDE
  4. XARELTO [Concomitant]
     Active Substance: RIVAROXABAN
     Indication: THROMBOSIS
  5. NEXIUM 24HR [Suspect]
     Active Substance: ESOMEPRAZOLE MAGNESIUM
     Indication: GASTRINOMA
     Dosage: 80 MG IN THE MORNING AND 40 MG AT NIGHT
     Route: 048
     Dates: start: 2015
  6. PRILOSEC [Suspect]
     Active Substance: OMEPRAZOLE MAGNESIUM
     Indication: GASTRINOMA
     Route: 048

REACTIONS (4)
  - Ulcer haemorrhage [Unknown]
  - Product use in unapproved indication [Unknown]
  - Drug ineffective for unapproved indication [Unknown]
  - Intentional product misuse [Not Recovered/Not Resolved]

NARRATIVE: CASE EVENT DATE: 2015
